FAERS Safety Report 17593359 (Version 4)
Quarter: 2020Q2

REPORT INFORMATION
  Report Type: Spontaneous
  Country: US (occurrence: US)
  Receive Date: 20200327
  Receipt Date: 20200528
  Transmission Date: 20200713
  Serious: No
  Sender: FDA-Public Use
  Company Number: US-BIOGEN-2020BI00854651

PATIENT
  Age: 51 Year
  Sex: Female

DRUGS (2)
  1. TYSABRI [Suspect]
     Active Substance: NATALIZUMAB
     Indication: MULTIPLE SCLEROSIS
     Route: 042
     Dates: start: 20190611
  2. TYSABRI [Suspect]
     Active Substance: NATALIZUMAB
     Route: 042
     Dates: start: 20171113, end: 20190401

REACTIONS (7)
  - Pyrexia [Unknown]
  - Peroneal nerve palsy [Unknown]
  - Back pain [Unknown]
  - Fall [Recovered/Resolved]
  - Product dose omission [Unknown]
  - Dysphagia [Unknown]
  - Nerve injury [Unknown]

NARRATIVE: CASE EVENT DATE: 20190714
